FAERS Safety Report 16509523 (Version 1)
Quarter: 2019Q3

REPORT INFORMATION
  Report Type: Spontaneous
  Country: US (occurrence: US)
  Receive Date: 20190701
  Receipt Date: 20190701
  Transmission Date: 20191004
  Serious: Yes (Hospitalization)
  Sender: FDA-Public Use
  Company Number: None

PATIENT
  Age: 60 Year
  Sex: Male

DRUGS (6)
  1. CLEOCIN PHOS [Concomitant]
  2. PREDNISONE. [Concomitant]
     Active Substance: PREDNISONE
  3. HUMIRA [Suspect]
     Active Substance: ADALIMUMAB
     Indication: COLITIS
     Dosage: ?          OTHER FREQUENCY:QOWK;??
     Route: 058
     Dates: start: 20181011
  4. APRISO [Concomitant]
     Active Substance: MESALAMINE
  5. TRAMADOL. [Concomitant]
     Active Substance: TRAMADOL
  6. CIPROFLOXACIN. [Concomitant]
     Active Substance: CIPROFLOXACIN

REACTIONS (4)
  - Large intestine infection [None]
  - Condition aggravated [None]
  - Diverticulitis [None]
  - Product dose omission [None]

NARRATIVE: CASE EVENT DATE: 20190520
